FAERS Safety Report 18905606 (Version 1)
Quarter: 2021Q1

REPORT INFORMATION
  Report Type: Spontaneous
  Country: CN (occurrence: CN)
  Receive Date: 20210217
  Receipt Date: 20210217
  Transmission Date: 20210420
  Serious: Yes (Death, Other)
  Sender: FDA-Public Use
  Company Number: CN-PFIZER INC-2021154536

PATIENT
  Age: 67 Year
  Sex: Male

DRUGS (2)
  1. CEFTRIAXONE. [Suspect]
     Active Substance: CEFTRIAXONE
     Indication: INFECTION
     Dosage: 2 G, 1X/DAY
     Dates: start: 20210203, end: 20210204
  2. PIPERACILLIN/TAZOBACTAM [Suspect]
     Active Substance: PIPERACILLIN SODIUM\TAZOBACTAM SODIUM
     Indication: INFECTION
     Dosage: 4.5 G, 3X/DAY, (Q8H (EVERY 8 HOURS))
     Dates: start: 20210204, end: 20210206

REACTIONS (11)
  - Septic shock [Fatal]
  - Oxygen saturation decreased [Unknown]
  - Myelosuppression [Fatal]
  - Condition aggravated [Fatal]
  - Hepatic encephalopathy [Fatal]
  - Type 2 diabetes mellitus [Fatal]
  - Heart rate decreased [Unknown]
  - Hepatic angiosarcoma [Fatal]
  - Chronic kidney disease [Fatal]
  - Blood pressure decreased [Unknown]
  - Hepatic function abnormal [Fatal]

NARRATIVE: CASE EVENT DATE: 20210205
